FAERS Safety Report 12450568 (Version 2)
Quarter: 2022Q4

REPORT INFORMATION
  Report Type: Spontaneous
  Country: IT (occurrence: IT)
  Receive Date: 20160609
  Receipt Date: 20221114
  Transmission Date: 20230112
  Serious: Yes (Other)
  Sender: FDA-Public Use
  Company Number: None

PATIENT
  Age: 28 Year
  Sex: Male

DRUGS (12)
  1. ZIPRASIDONE [Suspect]
     Active Substance: ZIPRASIDONE
     Indication: Psychotic disorder
     Dosage: 120 MG, QD
     Route: 048
     Dates: start: 201210
  2. ZIPRASIDONE [Suspect]
     Active Substance: ZIPRASIDONE
     Dosage: UNK (DRUG SLOWLY TAPERED)
     Route: 048
     Dates: start: 201210
  3. LORAZEPAM [Concomitant]
     Active Substance: LORAZEPAM
     Indication: Psychotic disorder
     Dosage: 7.5 MILLIGRAM, QD
     Route: 065
     Dates: start: 201210
  4. CLONAZEPAM [Concomitant]
     Active Substance: CLONAZEPAM
     Indication: Psychotic disorder
     Dosage: 8 MILLIGRAM, QD
     Route: 065
     Dates: start: 201210
  5. DIVALPROEX SODIUM [Concomitant]
     Active Substance: DIVALPROEX SODIUM
     Indication: Psychotic disorder
     Dosage: 1000 MG,UNK, DOSE INCREASED TO 1200 MG/DAY
     Route: 065
     Dates: start: 201210
  6. DIVALPROEX SODIUM [Concomitant]
     Active Substance: DIVALPROEX SODIUM
     Dosage: 1200 MILLIGRAM, QD
     Route: 065
  7. BIPERIDEN [Concomitant]
     Active Substance: BIPERIDEN
     Indication: Psychotic disorder
     Dosage: 1000 MG,UNK,
     Route: 065
     Dates: start: 201210
  8. BIPERIDEN [Concomitant]
     Active Substance: BIPERIDEN
     Dosage: 4 MG, QD
     Route: 065
  9. HALOPERIDOL [Concomitant]
     Active Substance: HALOPERIDOL
     Indication: Psychotic disorder
     Dosage: 6 MILLIGRAM, QD
     Route: 065
     Dates: start: 201210
  10. HALOPERIDOL [Concomitant]
     Active Substance: HALOPERIDOL
     Dosage: 9 MILLIGRAM, QD
     Route: 065
  11. PROMAZINE [Concomitant]
     Active Substance: PROMAZINE
     Indication: Psychotic disorder
     Dosage: 25 MG/ML
     Route: 065
     Dates: start: 201210
  12. DELORAZEPAM [Concomitant]
     Active Substance: DELORAZEPAM
     Indication: Psychotic disorder
     Dosage: 5 MG/ML
     Route: 065

REACTIONS (2)
  - Psychotic disorder [Recovering/Resolving]
  - Paradoxical drug reaction [Recovering/Resolving]

NARRATIVE: CASE EVENT DATE: 20121001
